FAERS Safety Report 24087564 (Version 2)
Quarter: 2024Q3

REPORT INFORMATION
  Report Type: Report from Study
  Country: ZA (occurrence: ZA)
  Receive Date: 20240714
  Receipt Date: 20240910
  Transmission Date: 20241017
  Serious: Yes (Death, Other)
  Sender: ABBVIE
  Company Number: ZA-ABBOTT-2024A-1384102

PATIENT
  Age: 55 Year
  Sex: Female

DRUGS (24)
  1. CREON [Suspect]
     Active Substance: PANCRELIPASE AMYLASE\PANCRELIPASE LIPASE\PANCRELIPASE PROTEASE
     Indication: Pancreatic failure
     Dosage: 150 MG TAKE ONE CAPSULE TWICE A DAY
     Route: 048
  2. CREON [Suspect]
     Active Substance: PANCRELIPASE AMYLASE\PANCRELIPASE LIPASE\PANCRELIPASE PROTEASE
     Indication: Pancreatic failure
     Dosage: 300 MG TAKE TWO CAPSULES EIGHT HOURLY?CREON 25000
     Route: 048
  3. PERINDOPRIL [Concomitant]
     Active Substance: PERINDOPRIL
     Indication: Hypertension
     Dosage: 5 MG TAKE ONE TABLET ONCE A DAY
     Route: 048
  4. GABAPENTIN [Concomitant]
     Active Substance: GABAPENTIN
     Indication: Epilepsy
     Dosage: 100 MG TAKE ONE CAPSULE TWICE A DAY
     Route: 048
  5. METOCLOPRAMIDE [Concomitant]
     Active Substance: METOCLOPRAMIDE
     Indication: Nausea
     Dosage: 10 MG TAKE ONE TABLET THREE TIMES DAILY
     Route: 048
  6. OXYCODONE HYDROCHLORIDE [Concomitant]
     Active Substance: OXYCODONE HYDROCHLORIDE
     Indication: Surgery
     Dosage: 5 MG TAKE ONE TABLET THREE TIMES DAILY
     Route: 048
  7. OXYCODONE HYDROCHLORIDE [Concomitant]
     Active Substance: OXYCODONE HYDROCHLORIDE
     Indication: Surgery
     Dosage: 10 MG TAKE ONE CAPSULE EIGHT HOURLY
     Route: 048
  8. FENDERMAL [Concomitant]
     Indication: Pain
     Dosage: 50 MCG AS PRESCRIBED
  9. FENDERMAL [Concomitant]
     Indication: Pain
     Dosage: 75 MCG APPLY ONE PATCH EVERY 72 HOURS FOR PAIN
     Route: 061
  10. Spiractin [Concomitant]
     Indication: Hypertension
     Dosage: 25 MG TAKE TWO TABLETS IN THE MORNING
     Route: 048
  11. XELODA [Concomitant]
     Active Substance: CAPECITABINE
     Indication: Neoplasm malignant
     Dosage: 150 MG TAKE ONE TABLET TWICE A DAY
     Route: 048
  12. XELODA [Concomitant]
     Active Substance: CAPECITABINE
     Indication: Neoplasm malignant
     Dosage: 500 MG TAKE TWO TABLETS TWICE A DAY
     Route: 048
  13. AMLODIPINE BESYLATE [Concomitant]
     Active Substance: AMLODIPINE BESYLATE
     Indication: Hypertension
     Dosage: 5 MG TAKE ONE TABLET ONCE DAILY
     Route: 048
  14. Peploc [Concomitant]
     Indication: Ulcer
     Dosage: 40 MG TAKE ONE TABLET ONCE DAILY IN THE MORNING
     Route: 048
  15. ASPELONE [Concomitant]
     Indication: Product used for unknown indication
     Dosage: 15 MG TAKE TWO MEASURES [10ML] IN THE MORNING
     Route: 048
  16. PREGABALIN [Concomitant]
     Active Substance: PREGABALIN
     Indication: Epilepsy
     Dosage: 25 MG TAKE FOUR TABLETS ONCE A DAY
     Route: 048
  17. OLANZAPINE [Concomitant]
     Active Substance: OLANZAPINE
     Indication: Mental disorder
     Dosage: 2.5 MG TAKE ONE TABLET TWICE A DAY
     Route: 048
  18. AUSTELL METOCLOPRAMIDE [Concomitant]
     Indication: Nausea
     Dosage: 10 MG ADMINISTER 10MG IVI ON DAY1,8,15
     Route: 042
  19. AUSTELL METOCLOPRAMIDE [Concomitant]
     Indication: Nausea
     Dosage: 150 MG TAKE ONE TABLET TWICE A DAY
     Route: 048
  20. Probiflora adult [Concomitant]
     Indication: Epilepsy
     Dosage: TAKE ONE TABLET TWICE A DAY, PROBIFLORA 4 STRAIN
     Route: 048
  21. METOCLOPRAMIDE HYDROCHLORIDE [Concomitant]
     Active Substance: METOCLOPRAMIDE HYDROCHLORIDE
     Indication: Product used for unknown indication
     Dosage: 10 MG TAKE ONE TABLET SIX HOURLY
     Route: 048
  22. METOCLOPRAMIDE HYDROCHLORIDE [Concomitant]
     Active Substance: METOCLOPRAMIDE HYDROCHLORIDE
     Indication: Product used for unknown indication
     Dosage: 150 MG TAKE ONE TABLET TWICE A DAY
     Route: 048
  23. LOPERAMIDE [Concomitant]
     Active Substance: LOPERAMIDE
     Indication: Product used for unknown indication
     Dosage: 150 MG TAKE ONE TABLET TWICE A DAY
     Route: 048
  24. LOPERAMIDE [Concomitant]
     Active Substance: LOPERAMIDE
     Indication: Product used for unknown indication
     Dosage: 2 MG TAKE ONE TABLET IF NECESSARY
     Route: 048

REACTIONS (1)
  - Pancreatic carcinoma [Fatal]
